FAERS Safety Report 8085668-3 (Version None)
Quarter: 2012Q1

REPORT INFORMATION
  Report Type: 
  Country: None (occurrence: None)
  Receive Date: 20120128
  Receipt Date: 20110404
  Transmission Date: 20120608
  Serious: No
  Sender: FDA-Public Use
  Company Number: US-ABBOTT-11P-163-0716555-00

PATIENT
  Sex: Male
  Weight: 101.24 kg

DRUGS (2)
  1. MANY CONCOMITANT MEDICATION (S) [Concomitant]
     Indication: PRODUCT USED FOR UNKNOWN INDICATION
  2. HUMIRA [Suspect]
     Indication: RHEUMATOID ARTHRITIS
     Dates: start: 20100101, end: 20101201

REACTIONS (1)
  - ARTHRITIS [None]
